FAERS Safety Report 13919016 (Version 3)
Quarter: 2017Q4

REPORT INFORMATION
  Report Type: Report from Study
  Country: CA (occurrence: CA)
  Receive Date: 20170830
  Receipt Date: 20171207
  Transmission Date: 20180320
  Serious: Yes (Death, Hospitalization)
  Sender: FDA-Public Use
  Company Number: CA-HLSUS-2017-CA-000924

PATIENT
  Age: 60 Year
  Sex: Female

DRUGS (8)
  1. VENTOLIN [Concomitant]
     Active Substance: ALBUTEROL SULFATE
  2. CLOZARIL [Suspect]
     Active Substance: CLOZAPINE
     Dosage: DAILY 200 MG IN THE MORNING AND 400 MG AT BED TIME
     Route: 048
     Dates: start: 19960522
  3. ARIPIPRAZOLE. [Concomitant]
     Active Substance: ARIPIPRAZOLE
     Dosage: 200 MG
     Route: 048
  4. LASIX [Concomitant]
     Active Substance: FUROSEMIDE
     Dosage: 40 MG
  5. CLOMIPRAMINE [Concomitant]
     Active Substance: CLOMIPRAMINE
     Dosage: 300 MG
  6. ADVAIR HFA [Concomitant]
     Active Substance: FLUTICASONE PROPIONATE\SALMETEROL XINAFOATE
  7. DILTIAZEM. [Concomitant]
     Active Substance: DILTIAZEM
     Dosage: 120MG
  8. ASPIRIN. [Concomitant]
     Active Substance: ASPIRIN
     Dosage: 81 MG
     Route: 048

REACTIONS (6)
  - Neutrophilia [Unknown]
  - Septic shock [Fatal]
  - Pneumonia [None]
  - Leukocytosis [Unknown]
  - Haemoglobin decreased [Unknown]
  - Hepatic failure [Fatal]

NARRATIVE: CASE EVENT DATE: 20170808
